FAERS Safety Report 6064721-X (Version None)
Quarter: 2009Q1

REPORT INFORMATION
  Report Type: 
  Country: None (occurrence: None)
  Receive Date: 20090204
  Receipt Date: 20080807
  Transmission Date: 20090719
  Serious: No
  Sender: FDA-Public Use
  Company Number: A0741557A

PATIENT
  Age: 45 Year

DRUGS (2)
  1. ARIXTRA [Suspect]
     Indication: DEEP VEIN THROMBOSIS
     Dosage: 7.5MG PER DAY
     Route: 058
     Dates: start: 20080730
  2. COUMADIN [Concomitant]

REACTIONS (4)
  - CONTUSION [None]
  - ILL-DEFINED DISORDER [None]
  - LOCAL SWELLING [None]
  - PAIN [None]
